FAERS Safety Report 6047019-5 (Version None)
Quarter: 2009Q1

REPORT INFORMATION
  Report Type: 
  Country: None (occurrence: None)
  Receive Date: 20090122
  Receipt Date: 20090109
  Transmission Date: 20090719
  Serious: Yes (Hospitalization)
  Sender: FDA-Public Use
  Company Number: US-ELI_LILLY_AND_COMPANY-US200901002349

PATIENT
  Sex: Female
  Weight: 66.213 kg

DRUGS (18)
  1. TADALAFIL [Suspect]
     Indication: PULMONARY ARTERIAL HYPERTENSION
     Dosage: UNK, DAILY (1/D)
     Route: 048
     Dates: start: 20060530, end: 20070605
  2. TADALAFIL [Suspect]
     Dosage: 40 MG, DAILY (1/D)
     Route: 048
     Dates: start: 20070605, end: 20090103
  3. VICODIN [Concomitant]
     Indication: HERPES ZOSTER
     Dates: start: 20060214
  4. POTASSIUM CHLORIDE [Concomitant]
     Indication: HYPOKALAEMIA
     Dates: start: 19960101
  5. FUROSEMIDE [Concomitant]
     Indication: HYPERTENSION
     Dates: start: 19960101
  6. DIGOXIN [Concomitant]
     Indication: PULMONARY ARTERIAL HYPERTENSION
     Dates: start: 20050701
  7. ATENOLOL [Concomitant]
     Indication: HYPERTENSION
     Dates: start: 19960101
  8. LIPITOR [Concomitant]
     Indication: HYPERCHOLESTEROLAEMIA
     Dates: start: 19960101
  9. FLUOXETINE HYDROCHLORIDE [Concomitant]
     Indication: DEPRESSION
     Dates: start: 20020101
  10. PREVACID [Concomitant]
     Indication: GASTROOESOPHAGEAL REFLUX DISEASE
     Dosage: UNK, UNK
     Dates: start: 20000101
  11. LANTUS [Concomitant]
     Indication: DIABETES MELLITUS
     Dates: start: 19860101
  12. HUMULIN                            /00646001/ [Concomitant]
     Indication: DIABETES MELLITUS
     Dates: start: 19860101
  13. COMBIVENT [Concomitant]
     Indication: PULMONARY FIBROSIS
  14. CALCIUM W/VITAMIN D NOS [Concomitant]
     Indication: SUPPLEMENTATION THERAPY
     Dates: start: 20080428
  15. ADVAIR DISKUS 100/50 [Concomitant]
     Indication: PULMONARY FIBROSIS
     Dates: start: 20080428
  16. PREDNISONE [Concomitant]
     Indication: BRONCHIECTASIS
     Dates: start: 20080225
  17. SYMBICORT [Concomitant]
     Indication: BRONCHIECTASIS
     Dates: start: 20080225
  18. WARFARIN SODIUM [Concomitant]
     Indication: PULMONARY ARTERIAL HYPERTENSION
     Dates: start: 20050301

REACTIONS (15)
  - AORTIC STENOSIS [None]
  - CARDIAC FAILURE CONGESTIVE [None]
  - CAROTID ARTERIOSCLEROSIS [None]
  - DYSPNOEA [None]
  - FALL [None]
  - HAEMATOCRIT DECREASED [None]
  - HAEMOGLOBIN DECREASED [None]
  - HYPOTENSION [None]
  - MITRAL VALVE INCOMPETENCE [None]
  - MITRAL VALVE STENOSIS [None]
  - OEDEMA [None]
  - PNEUMONIA [None]
  - SPINAL OSTEOARTHRITIS [None]
  - SYNCOPE [None]
  - TRICUSPID VALVE INCOMPETENCE [None]
